FAERS Safety Report 17093469 (Version 1)
Quarter: 2019Q4

REPORT INFORMATION
  Report Type: Spontaneous
  Country: US (occurrence: US)
  Receive Date: 20191129
  Receipt Date: 20191129
  Transmission Date: 20200122
  Serious: Yes (Death, Other)
  Sender: FDA-Public Use
  Company Number: US-PFIZER INC-2019515445

PATIENT
  Age: 55 Year
  Sex: Male

DRUGS (13)
  1. BABY ASPIRIN [Concomitant]
     Active Substance: ASPIRIN
     Indication: CARDIAC DISCOMFORT
     Dosage: UNK, 1X/DAY
  2. CALCITRIOL. [Concomitant]
     Active Substance: CALCITRIOL
     Indication: END STAGE RENAL DISEASE
     Dosage: 1 UG, DAILY
  3. DOCUSATE;SENNA [Concomitant]
     Indication: CONSTIPATION
     Dosage: 4 DF, UNK (DOCUSATE 300 MG + SENNA 32 MG)
  4. SENSIPAR [Concomitant]
     Active Substance: CINACALCET HYDROCHLORIDE
     Indication: PARATHYROID DISORDER
     Dosage: 30 MG, UNK
  5. TYLENOL [Concomitant]
     Active Substance: ACETAMINOPHEN
     Indication: PAIN
     Dosage: 1000 MG, AS NEEDED (EVERY 12 HOURS, AS NEEDED)
  6. LYRICA [Suspect]
     Active Substance: PREGABALIN
     Indication: PHANTOM LIMB SYNDROME
     Dosage: 50 MG, 1X/DAY (AT NIGHT)
  7. NORTRIPTYLINE [Concomitant]
     Active Substance: NORTRIPTYLINE
     Indication: PAIN IN EXTREMITY
     Dosage: 40 MG, UNK
  8. METOPROLOL. [Concomitant]
     Active Substance: METOPROLOL
     Indication: BLOOD PRESSURE ABNORMAL
     Dosage: 12.5 MG, UNK
  9. NEXIUM I.V. [Concomitant]
     Active Substance: ESOMEPRAZOLE SODIUM
     Indication: GASTROOESOPHAGEAL REFLUX DISEASE
     Dosage: 40 MG, 1X/DAY
  10. OXYCODONE [Concomitant]
     Active Substance: OXYCODONE
     Indication: PAIN
     Dosage: 20 MG, 2X/DAY (EVERY 12 HOURS)
  11. INSULIN NPH [INSULIN ISOPHANE BOVINE] [Concomitant]
     Dosage: 80 IU, UNK
  12. INSULIN [Concomitant]
     Active Substance: INSULIN NOS
     Dosage: UNK
  13. LIPITOR [Concomitant]
     Active Substance: ATORVASTATIN CALCIUM
     Indication: CARDIAC DISCOMFORT
     Dosage: 40 MG, UNK

REACTIONS (4)
  - Product use in unapproved indication [Unknown]
  - Off label use [Unknown]
  - Cardiac arrest [Fatal]
  - Unresponsive to stimuli [Fatal]

NARRATIVE: CASE EVENT DATE: 20190807
